FAERS Safety Report 23252917 (Version 2)
Quarter: 2023Q4

REPORT INFORMATION
  Report Type: Report from Study
  Country: CN (occurrence: CN)
  Receive Date: 20231201
  Receipt Date: 20231208
  Transmission Date: 20240109
  Serious: Yes (Hospitalization)
  Sender: FDA-Public Use
  Company Number: CN-CARA THERAPEUTICS, INC.-2023-00411-CN

PATIENT
  Age: 78 Year
  Sex: Male
  Weight: 56 kg

DRUGS (11)
  1. DIFELIKEFALIN [Suspect]
     Active Substance: DIFELIKEFALIN
     Indication: Uraemic pruritus
     Dosage: 0.5 ML
     Route: 042
     Dates: start: 20231002, end: 20231120
  2. DIFELIKEFALIN [Suspect]
     Active Substance: DIFELIKEFALIN
     Indication: Haemodialysis
     Dosage: CUMULATIVE TOTAL DOSE OF STUDY DRUG ADMINISTERED UNTIL START OF EVENT 9.5 ML (0.5 ML)
     Route: 042
     Dates: start: 20231113
  3. ESTAZOLAM [Concomitant]
     Active Substance: ESTAZOLAM
     Indication: Sleep disorder
     Dosage: 3 MG (3 MG,1 IN1 D)
     Route: 048
     Dates: start: 20230213
  4. ENOXAPARIN SODIUM [Concomitant]
     Active Substance: ENOXAPARIN SODIUM
     Indication: Anticoagulant therapy
     Dosage: 4000 AXAIU (3 IN 1 WK)
     Route: 042
     Dates: start: 20230517
  5. L-CARNITINE [LEVOCARNITINE HYDROCHLORIDE] [Concomitant]
     Indication: Carnitine abnormal
     Dosage: (1 GM,3 IN 1 WK)
     Route: 042
     Dates: start: 20230503
  6. ERYTHROPOIETIN [Concomitant]
     Active Substance: ERYTHROPOIETIN
     Indication: Nephrogenic anaemia
     Dosage: 6000 IU,1 IN 1 WK
     Route: 042
     Dates: start: 20230929
  7. ERYTHROPOIETIN [Concomitant]
     Active Substance: ERYTHROPOIETIN
     Dosage: 4000 IU,3 IN 1 WK
     Route: 042
     Dates: start: 20230916, end: 20230929
  8. ERYTHROPOIETIN [Concomitant]
     Active Substance: ERYTHROPOIETIN
     Dosage: 2000 IU,3 IN 1 WK
     Route: 042
     Dates: start: 20230802, end: 20230906
  9. ERYTHROPOIETIN [Concomitant]
     Active Substance: ERYTHROPOIETIN
     Dosage: 3000 IU,1 IN 1 WK
     Route: 042
     Dates: start: 20230503, end: 20230802
  10. FINASTERIDE [Concomitant]
     Active Substance: FINASTERIDE
     Indication: Benign prostatic hyperplasia
     Dosage: 5 MILLIGRAM, QD
     Route: 048
     Dates: start: 20231114, end: 20231121
  11. TAMSULOSIN [Concomitant]
     Active Substance: TAMSULOSIN
     Indication: Benign prostatic hyperplasia
     Dosage: 0.2 MILLIGRAM, QD
     Route: 048
     Dates: start: 20231114, end: 20231121

REACTIONS (1)
  - Hypotension [Recovering/Resolving]

NARRATIVE: CASE EVENT DATE: 20231113
